FAERS Safety Report 9216093 (Version 2)
Quarter: 2013Q2

REPORT INFORMATION
  Report Type: Spontaneous
  Country: JP (occurrence: None)
  Receive Date: 20130402
  Receipt Date: 20130422
  Transmission Date: 20140414
  Serious: Yes (Hospitalization)
  Sender: FDA-Public Use
  Company Number: TCI2013A01455

PATIENT
  Age: 92 Year
  Sex: Male

DRUGS (22)
  1. ORTERONEL [Suspect]
     Indication: PROSTATE CANCER
  2. LEUPLIN [Suspect]
     Indication: PROSTATE CANCER
     Dosage: 11.25 MG (11.25 MG, 1 IN 3 M)
     Route: 058
     Dates: start: 20021209
  3. ROZEREM TABLETS 8MG (RAMELTEON) [Suspect]
     Indication: INSOMNIA
     Dosage: 8 MG (8 MG, 1 IN 1 D) ORAL?
     Route: 048
     Dates: start: 201203, end: 20130318
  4. ROZEREM TABLETS 8MG (RAMELTEON) [Suspect]
     Indication: DEMENTIA
     Dosage: 8 MG (8 MG, 1 IN 1 D) ORAL?
     Route: 048
     Dates: start: 201203, end: 20130318
  5. HARNAL D (TAMSULOSIN HYDROCHLORIDE) [Suspect]
     Indication: BENIGN PROSTATIC HYPERPLASIA
     Dosage: 0.2 MG (0.2 MG, 1 IN 1 D), ORAL STOPPED
     Route: 048
     Dates: start: 20020116
  6. FLAVOXATE HYDROCHLORIDE [Suspect]
     Indication: HYPERTONIC BLADDER
     Dosage: 400 MG ( 400 MG, 1 IN 1 D), ORAL
     Route: 048
     Dates: start: 20080811, end: 20130318
  7. BAYASPIRIN (ACETYLSALICYLIC ACID) (ACETYLSALICYLIC ACID) [Suspect]
     Indication: THROMBOSIS PROPHYLAXIS
     Dosage: 100 MG ( 100 MG, 1 IN 1 D), ORAL
     Route: 048
     Dates: start: 20110621, end: 20130318
  8. VASOLAN [Suspect]
     Indication: WOLFF-PARKINSON-WHITE SYNDROME
     Dosage: 240 MG ( 80 MG, 3 IN 1 D), ORAL
     Route: 048
     Dates: start: 1991, end: 20130311
  9. URSO [Suspect]
     Indication: LIVER DISORDER
     Dosage: 600 MG (200 MG, 3 IN 1D) ORAL
     Route: 048
     Dates: start: 1991, end: 20130311
  10. MEVALOTIN [Suspect]
     Indication: LIPIDS ABNORMAL
     Dosage: 10 MG ( 10 MG, 1 IN 1 D), ORAL
     Route: 048
     Dates: start: 19980624, end: 20130311
  11. LASIX (FUROSEMIDE) [Suspect]
     Indication: HYPERTENSION
     Dosage: 20 MG ( 20 MG, 1 IN 1 D), ORAL
     Route: 048
     Dates: start: 20110413, end: 20130311
  12. LASIX (FUROSEMIDE) [Suspect]
     Indication: OEDEMA PERIPHERAL
     Dosage: 20 MG ( 20 MG, 1 IN 1 D), ORAL
     Route: 048
     Dates: start: 20110413, end: 20130311
  13. LASIX (FUROSEMIDE) [Suspect]
     Indication: PROPHYLAXIS
     Dosage: 20 MG ( 20 MG, 1 IN 1 D), ORAL
     Route: 048
     Dates: start: 20110413, end: 20130311
  14. MICAMLO [Suspect]
     Indication: HYPERTENSION
     Dosage: 1 TAB. ( 1 TAB., 1 IN 1 D), ORAL
     Route: 048
     Dates: start: 20110514, end: 20130311
  15. ARICEPT [Suspect]
     Indication: DEMENTIA
     Dosage: 5 MG (5 MG, 1 IN 1 D), ORAL
     Route: 048
     Dates: start: 201203
  16. DEPAKENE-R [Suspect]
     Indication: DEMENTIA
     Dosage: 100 MG ( 100 MG, 1 IN 1 D), ORAL
     Route: 048
     Dates: start: 201203
  17. DEPAKENE-R [Suspect]
     Indication: AGITATION
     Dosage: 100 MG ( 100 MG, 1 IN 1 D), ORAL
     Route: 048
     Dates: start: 201203
  18. FLOMOX [Concomitant]
  19. CETIRIZINE HCL [Concomitant]
  20. FULMETA  0.1% (MOMETASONE FUROATE) [Concomitant]
  21. DERMOVARE SCALP 0.05% (CLOBETASOL PROPIONATE) [Concomitant]
  22. HIRUDOID SOFT 0.3% (HEPARINOID) [Concomitant]

REACTIONS (6)
  - Drug eruption [None]
  - Rash papular [None]
  - Rash erythematous [None]
  - Pruritus [None]
  - Oedema [None]
  - Eczema [None]
